FAERS Safety Report 12451095 (Version 1)
Quarter: 2016Q2

REPORT INFORMATION
  Report Type: Spontaneous
  Country: DE (occurrence: DE)
  Receive Date: 20160609
  Receipt Date: 20160609
  Transmission Date: 20160815
  Serious: Yes (Hospitalization, Other)
  Sender: FDA-Public Use
  Company Number: DE-TEVA-665587GER

PATIENT
  Sex: Female

DRUGS (2)
  1. BISOPROLOL-RATIOPHARM 5 MG TABLETTEN [Suspect]
     Active Substance: BISOPROLOL
     Dosage: INTAKE 1-0-1
     Route: 065
  2. RAMIPRIL. [Concomitant]
     Active Substance: RAMIPRIL
     Route: 065

REACTIONS (4)
  - Pulmonary oedema [Unknown]
  - Accident [Unknown]
  - Hypoaesthesia [Unknown]
  - Skull fracture [Unknown]
